FAERS Safety Report 8262762-5 (Version None)
Quarter: 2012Q2

REPORT INFORMATION
  Report Type: 
  Country: None (occurrence: None)
  Receive Date: 20120405
  Receipt Date: 20120330
  Transmission Date: 20120825
  Serious: No
  Sender: FDA-Public Use
  Company Number: US-BAYER-2012-033111

PATIENT
  Age: 36 Year
  Sex: Female
  Weight: 77 kg

DRUGS (1)
  1. ALEVE (CAPLET) [Suspect]
     Indication: DYSMENORRHOEA
     Dosage: 1 TAB ONCE DAILY
     Route: 048
     Dates: start: 20120330, end: 20120330

REACTIONS (3)
  - ASTHENIA [None]
  - DIZZINESS [None]
  - SOMNOLENCE [None]
